FAERS Safety Report 6568763-7 (Version None)
Quarter: 2010Q1

REPORT INFORMATION
  Report Type: 
  Country: None (occurrence: None)
  Receive Date: 20100128
  Receipt Date: 20091127
  Transmission Date: 20100710
  Serious: Yes (Other)
  Sender: FDA-Public Use
  Company Number: 2009SP038486

PATIENT
  Age: 18 Month
  Sex: Female
  Weight: 12.2471 kg

DRUGS (2)
  1. AERIUS KIDS (DESLORATADINE /01398501/) [Suspect]
     Dosage: 1.5 ML; PO
     Route: 048
  2. VENTOLIN [Concomitant]

REACTIONS (3)
  - AGITATION [None]
  - DYSPNOEA [None]
  - PALPITATIONS [None]
